FAERS Safety Report 13353727 (Version 1)
Quarter: 2017Q1

REPORT INFORMATION
  Report Type: Spontaneous
  Country: US (occurrence: US)
  Receive Date: 20170319
  Receipt Date: 20170319
  Transmission Date: 20170429
  Serious: Yes (Life-Threatening)
  Sender: FDA-Public Use
  Company Number: None

PATIENT
  Age: 36 Year
  Sex: Male
  Weight: 85.5 kg

DRUGS (2)
  1. MODAFINOL [Concomitant]
  2. COPAXONE [Suspect]
     Active Substance: GLATIRAMER ACETATE
     Indication: MULTIPLE SCLEROSIS
     Dates: start: 20160726, end: 20170312

REACTIONS (2)
  - Anaphylactic reaction [None]
  - Muscle spasms [None]

NARRATIVE: CASE EVENT DATE: 20170312
